FAERS Safety Report 22838001 (Version 3)
Quarter: 2023Q4

REPORT INFORMATION
  Report Type: Spontaneous
  Country: US (occurrence: US)
  Receive Date: 20230818
  Receipt Date: 20231121
  Transmission Date: 20240110
  Serious: No
  Sender: FDA-Public Use
  Company Number: US-ASTELLAS-2023US023168

PATIENT
  Age: 75 Year
  Sex: Male

DRUGS (2)
  1. VEOZAH [Suspect]
     Active Substance: FEZOLINETANT
     Indication: Hyperhidrosis
     Dosage: 45 MG, ONCE DAILY (MORNING)
     Route: 048
     Dates: start: 202307
  2. VEOZAH [Suspect]
     Active Substance: FEZOLINETANT
     Indication: Hot flush
     Dosage: 45 MG, ONCE DAILY (NIGHT)
     Route: 048
     Dates: end: 202308

REACTIONS (5)
  - Drug effective for unapproved indication [Unknown]
  - Product availability issue [Unknown]
  - Inability to afford medication [Unknown]
  - Intentional product use issue [Unknown]
  - Off label use [Unknown]

NARRATIVE: CASE EVENT DATE: 20230701
